FAERS Safety Report 5858537-4 (Version None)
Quarter: 2008Q3

REPORT INFORMATION
  Report Type: 
  Country: None (occurrence: None)
  Receive Date: 20080818
  Receipt Date: 20080616
  Transmission Date: 20090109
  Serious: No
  Sender: FDA-Public Use
  Company Number: TPA2008A00909

PATIENT
  Age: 51 Year
  Sex: Female
  Weight: 81.6475 kg

DRUGS (5)
  1. ROZEREM [Suspect]
     Indication: INSOMNIA
     Dosage: 8 MG, QHS, PER ORAL
     Route: 048
     Dates: start: 20080613, end: 20080616
  2. FLUVOXAMINE MALEATE [Concomitant]
  3. LEVOXYL [Concomitant]
  4. INVEGA (ALL OTHER THERAPEUTIC PRODUCTS) [Concomitant]
  5. SIMVASTATIN [Concomitant]

REACTIONS (3)
  - INITIAL INSOMNIA [None]
  - MIDDLE INSOMNIA [None]
  - NIGHTMARE [None]
